FAERS Safety Report 16396804 (Version 2)
Quarter: 2019Q2

REPORT INFORMATION
  Report Type: Spontaneous
  Country: US (occurrence: US)
  Receive Date: 20190606
  Receipt Date: 20190606
  Transmission Date: 20190711
  Serious: No
  Sender: FDA-Public Use
  Company Number: US-009507513-1906USA001703

PATIENT
  Sex: Female

DRUGS (2)
  1. ASMANEX [Suspect]
     Active Substance: MOMETASONE FUROATE
     Dosage: 1 INHALATION DAILY
     Route: 055
  2. ASMANEX [Suspect]
     Active Substance: MOMETASONE FUROATE
     Dosage: 1 INHALATION DAILY
     Route: 055
     Dates: start: 20190505, end: 2019

REACTIONS (3)
  - No adverse event [Unknown]
  - Poor quality device used [Unknown]
  - Product quality issue [Unknown]

NARRATIVE: CASE EVENT DATE: 20190505
